FAERS Safety Report 18477180 (Version 1)
Quarter: 2020Q4

REPORT INFORMATION
  Report Type: Spontaneous
  Country: US (occurrence: US)
  Receive Date: 20201107
  Receipt Date: 20201107
  Transmission Date: 20210114
  Serious: No
  Sender: FDA-Public Use
  Company Number: US-PERRIGO-20US006596

PATIENT
  Age: 75 Year
  Sex: Female
  Weight: 61.22 kg

DRUGS (2)
  1. PRIMIDONE. [Concomitant]
     Active Substance: PRIMIDONE
     Indication: TREMOR
     Dosage: UNK
     Route: 065
  2. ERYTHROMYCIN. [Suspect]
     Active Substance: ERYTHROMYCIN
     Indication: EYE DISCHARGE
     Dosage: SMALL AMOUNT, 2 TO 3 TIMES, QD
     Route: 047
     Dates: start: 20200501

REACTIONS (3)
  - Visual impairment [Recovered/Resolved]
  - Fall [Recovered/Resolved]
  - Facial pain [Recovered/Resolved]

NARRATIVE: CASE EVENT DATE: 20200501
